FAERS Safety Report 10418648 (Version 1)
Quarter: 2014Q2

REPORT INFORMATION
  Report Type: Spontaneous
  Country: US (occurrence: None)
  Receive Date: 20140613
  Receipt Date: 20140613
  Transmission Date: 20141212
  Serious: No
  Sender: FDA-Public Use
  Company Number: 1282539

PATIENT
  Age: 60 Year
  Sex: Female

DRUGS (1)
  1. ZELBORAF (VEMURAFENIB) [Suspect]
     Indication: METASTATIC MALIGNANT MELANOMA
     Dosage: DOSE: 4 TABLETS (8 TABLLETS/DAY)
     Route: 048
     Dates: start: 201305

REACTIONS (12)
  - Rash [None]
  - Arthralgia [None]
  - Palpitations [None]
  - Joint swelling [None]
  - Joint swelling [None]
  - Musculoskeletal pain [None]
  - Neck pain [None]
  - Alopecia [None]
  - Tooth fracture [None]
  - Vitamin D deficiency [None]
  - Iron deficiency [None]
  - Anaemia [None]
